FAERS Safety Report 6704553-X (Version None)
Quarter: 2010Q2

REPORT INFORMATION
  Report Type: 
  Country: None (occurrence: None)
  Receive Date: 20100430
  Receipt Date: 20100423
  Transmission Date: 20101027
  Serious: Yes (Hospitalization)
  Sender: FDA-Public Use
  Company Number: PHHY2010JP26435

PATIENT
  Sex: Female

DRUGS (1)
  1. ZADITEN [Suspect]
     Indication: PRURITUS
     Route: 048

REACTIONS (2)
  - ABORTION THREATENED [None]
  - DRUG EXPOSURE DURING PREGNANCY [None]
